FAERS Safety Report 21216076 (Version 1)
Quarter: 2022Q3

REPORT INFORMATION
  Report Type: Spontaneous
  Country: US (occurrence: US)
  Receive Date: 20220816
  Receipt Date: 20220816
  Transmission Date: 20221027
  Serious: Yes (Other)
  Sender: FDA-Public Use
  Company Number: US-MYLANLABS-2022M1085914

PATIENT
  Sex: Male
  Weight: 108.86 kg

DRUGS (2)
  1. METOPROLOL SUCCINATE [Suspect]
     Active Substance: METOPROLOL SUCCINATE
     Indication: Heart rate irregular
     Dosage: 1 DOSAGE FORM, TID (TO BE TAKEN ONE TABLET THREE TIMES A DAY)
     Route: 048
     Dates: start: 2016
  2. OMEPRAZOLE [Concomitant]
     Active Substance: OMEPRAZOLE
     Indication: Dyspepsia
     Dosage: UNK
     Route: 065

REACTIONS (4)
  - Arrhythmia [Unknown]
  - Illness [Unknown]
  - Palpitations [Unknown]
  - Drug ineffective [Unknown]
